FAERS Safety Report 23614132 (Version 1)
Quarter: 2024Q1

REPORT INFORMATION
  Report Type: Report from Study
  Country: US (occurrence: US)
  Receive Date: 20240310
  Receipt Date: 20240310
  Transmission Date: 20240410
  Serious: Yes (Other)
  Sender: FDA-Public Use
  Company Number: US-JNJFOC-20240307443

PATIENT
  Age: 61 Year
  Sex: Female

DRUGS (2)
  1. SPRAVATO [Suspect]
     Active Substance: ESKETAMINE
     Indication: Depression
     Dosage: ^84 MG, 95 TOTAL DOSES^
     Dates: start: 20210606, end: 20240222
  2. SPRAVATO [Suspect]
     Active Substance: ESKETAMINE
     Indication: Major depression

REACTIONS (4)
  - Brain neoplasm [Unknown]
  - Non-Hodgkin^s lymphoma [Unknown]
  - Crohn^s disease [Unknown]
  - Intestinal stenosis [Unknown]
